FAERS Safety Report 5583000-8 (Version None)
Quarter: 2007Q4

REPORT INFORMATION
  Report Type: 
  Country: None (occurrence: None)
  Receive Date: 20071231
  Receipt Date: 20071220
  Transmission Date: 20080405
  Serious: No
  Sender: FDA-Public Use
  Company Number: 2007-169550-NL

PATIENT
  Age: 56 Year
  Sex: Male

DRUGS (6)
  1. MIRTAZAPINE [Suspect]
     Indication: DEPRESSION
     Dosage: 15 MG ORAL
     Route: 048
     Dates: start: 20071217
  2. BROMAZEPAM [Concomitant]
  3. PAROXETINE HYDROCHLORIDE [Concomitant]
  4. LORAZEPAM [Concomitant]
  5. ESCITALOPRAM [Concomitant]
  6. ANSIUM LESVI [Concomitant]

REACTIONS (1)
  - BLOOD GLUCOSE INCREASED [None]
